APPROVED DRUG PRODUCT: ETODOLAC
Active Ingredient: ETODOLAC
Strength: 500MG
Dosage Form/Route: TABLET;ORAL
Application: A209888 | Product #002 | TE Code: AB
Applicant: ADAPTIS PHARMA PRIVATE LTD
Approved: Nov 30, 2018 | RLD: No | RS: No | Type: RX